FAERS Safety Report 25602380 (Version 1)
Quarter: 2025Q3

REPORT INFORMATION
  Report Type: Spontaneous
  Country: US (occurrence: None)
  Receive Date: 20250724
  Receipt Date: 20250724
  Transmission Date: 20251021
  Serious: Yes (Death)
  Sender: FDA-CTU
  Company Number: None

PATIENT
  Age: 92 Year
  Sex: Female
  Weight: 63.5 kg

DRUGS (2)
  1. FERUMOXYTOL [Suspect]
     Active Substance: FERUMOXYTOL
     Indication: Iron deficiency anaemia
     Route: 042
  2. FERUMOXYTOL [Suspect]
     Active Substance: FERUMOXYTOL
     Indication: Blood loss anaemia

REACTIONS (2)
  - Cardio-respiratory arrest [None]
  - Pulseless electrical activity [None]

NARRATIVE: CASE EVENT DATE: 20250710
